FAERS Safety Report 17003078 (Version 2)
Quarter: 2020Q2

REPORT INFORMATION
  Report Type: Spontaneous
  Country: PT (occurrence: PT)
  Receive Date: 20191107
  Receipt Date: 20200413
  Transmission Date: 20200713
  Serious: Yes (Hospitalization, Other)
  Sender: FDA-Public Use
  Company Number: PT-SUN PHARMACEUTICAL INDUSTRIES LTD-2019RR-226702

PATIENT
  Age: 85 Year
  Sex: Female

DRUGS (4)
  1. METFORMIN;VILDAGLIPTIN [Suspect]
     Active Substance: METFORMIN\VILDAGLIPTIN
     Indication: PRODUCT USED FOR UNKNOWN INDICATION
     Dosage: UNK ()
     Route: 065
  2. AMLODIPINE;LISINOPRIL [Suspect]
     Active Substance: AMLODIPINE BESYLATE\LISINOPRIL
     Indication: PRODUCT USED FOR UNKNOWN INDICATION
     Dosage: UNK ()
     Route: 065
  3. BISOPROLOL [Suspect]
     Active Substance: BISOPROLOL
     Indication: PRODUCT USED FOR UNKNOWN INDICATION
     Dosage: 2.5 MILLIGRAM, UNK
     Route: 065
  4. RAMIPRIL. [Suspect]
     Active Substance: RAMIPRIL
     Indication: PRODUCT USED FOR UNKNOWN INDICATION
     Dosage: 5 MILLIGRAMS, UNK
     Route: 065

REACTIONS (9)
  - Metabolic acidosis [Not Recovered/Not Resolved]
  - Troponin I increased [Unknown]
  - Chronic kidney disease [Unknown]
  - Hyperkalaemia [Recovered/Resolved]
  - Frustration tolerance decreased [Not Recovered/Not Resolved]
  - Bradycardia [Unknown]
  - Chest pain [Unknown]
  - Renal tubular acidosis [Unknown]
  - Myalgia [Unknown]
